FAERS Safety Report 5482735-5 (Version None)
Quarter: 2007Q4

REPORT INFORMATION
  Report Type: 
  Country: None (occurrence: None)
  Receive Date: 20071011
  Receipt Date: 20071004
  Transmission Date: 20080405
  Serious: Yes (Other)
  Sender: FDA-Public Use
  Company Number: GR-PFIZER INC-2007079747

PATIENT
  Sex: Female
  Weight: 118 kg

DRUGS (7)
  1. EXUBERA [Suspect]
     Indication: TYPE 2 DIABETES MELLITUS
     Route: 048
     Dates: start: 20070910, end: 20070921
  2. LOBIVON [Concomitant]
     Route: 048
  3. COAPROVEL [Concomitant]
     Route: 048
     Dates: start: 20060101
  4. NORVASC [Concomitant]
     Route: 048
     Dates: start: 20000101
  5. ANGORON [Concomitant]
     Route: 048
     Dates: start: 20070909
  6. SALOSPIR [Concomitant]
     Route: 048
     Dates: start: 20070909
  7. SIL-NORBORAL [Concomitant]
     Route: 048
     Dates: start: 20000101

REACTIONS (2)
  - DYSPNOEA [None]
  - OEDEMA PERIPHERAL [None]
